FAERS Safety Report 12997506 (Version 1)
Quarter: 2016Q4

REPORT INFORMATION
  Report Type: Spontaneous
  Country: AU (occurrence: AU)
  Receive Date: 20161205
  Receipt Date: 20161205
  Transmission Date: 20170207
  Serious: Yes (Hospitalization, Other)
  Sender: FDA-Public Use
  Company Number: PHHY2016AU163224

PATIENT
  Sex: Female

DRUGS (4)
  1. FEMARA [Suspect]
     Active Substance: LETROZOLE
     Indication: PRODUCT USED FOR UNKNOWN INDICATION
     Route: 065
  2. TARGIN [Concomitant]
     Active Substance: NALOXONE HYDROCHLORIDE\OXYCODONE HYDROCHLORIDE
     Indication: PRODUCT USED FOR UNKNOWN INDICATION
     Route: 065
  3. HEPARIN [Concomitant]
     Active Substance: HEPARIN SODIUM
     Indication: PRODUCT USED FOR UNKNOWN INDICATION
     Route: 065
  4. ENOXAPARIN SODIUM. [Concomitant]
     Active Substance: ENOXAPARIN SODIUM
     Indication: ANTICOAGULANT THERAPY
     Route: 065

REACTIONS (11)
  - Contusion [Unknown]
  - Alopecia [Unknown]
  - Chest discomfort [Unknown]
  - Dyspnoea [Unknown]
  - Bone disorder [Unknown]
  - Fatigue [Unknown]
  - Pneumothorax [Unknown]
  - Fracture [Unknown]
  - Atelectasis [Unknown]
  - Pleuritic pain [Unknown]
  - Hypotension [Unknown]
